FAERS Safety Report 4445675-6 (Version None)
Quarter: 2004Q3

REPORT INFORMATION
  Report Type: 
  Country: None (occurrence: None)
  Receive Date: 20040902
  Receipt Date: 20040817
  Transmission Date: 20050211
  Serious: Yes (Other)
  Sender: FDA-Public Use
  Company Number: 2004-BP-03275NB

PATIENT
  Age: 71 Year
  Sex: Male

DRUGS (6)
  1. MICARDIS [Suspect]
     Indication: HYPERTENSION
     Dosage: 40 MG (20MG); PO
     Route: 048
     Dates: start: 20040203, end: 20040427
  2. LIPITOR [Suspect]
     Indication: HYPERLIPIDAEMIA
     Dosage: 10 MG(10 MG), PO
     Route: 048
     Dates: start: 20030812, end: 20040203
  3. LOPRESOR (METOPROLOL TARTRATE) (TA) [Concomitant]
  4. DEPAKANE (VALPROATE SODIUM) (TA) [Concomitant]
  5. NIVADIL (NILVADIPINE) (TA) [Concomitant]
  6. TICLOPIDINE HCL [Concomitant]

REACTIONS (1)
  - BLOOD CREATINE PHOSPHOKINASE INCREASED [None]
